FAERS Safety Report 7623127-X (Version None)
Quarter: 2011Q3

REPORT INFORMATION
  Report Type: 
  Country: None (occurrence: None)
  Receive Date: 20110720
  Receipt Date: 20110706
  Transmission Date: 20111222
  Serious: Yes (Hospitalization, Other)
  Sender: FDA-Public Use
  Company Number: PHHY2011US51428

PATIENT
  Sex: Female
  Weight: 53.515 kg

DRUGS (9)
  1. NORVASC [Concomitant]
     Dosage: 5 MG, UNK
  2. CELEBREX [Concomitant]
     Dosage: 100 MG, UNK
  3. VITAMIN D [Concomitant]
  4. TEKTURNA [Suspect]
     Dosage: 150 MG, QD
     Dates: start: 20100901
  5. BETIMOL [Concomitant]
     Dosage: UNK UKN, BID
  6. AZOPT [Concomitant]
     Dosage: 1 %, UNK
  7. CALCIUM CARBONATE [Concomitant]
     Dosage: 50000 U, UNK
  8. ASPIRIN [Concomitant]
  9. THYROID TAB [Concomitant]
     Dosage: UNK UKN, ONE GRAIN

REACTIONS (6)
  - HYPOTENSION [None]
  - CONFUSIONAL STATE [None]
  - UPPER LIMB FRACTURE [None]
  - FALL [None]
  - HEADACHE [None]
  - BLOOD PRESSURE INCREASED [None]
